FAERS Safety Report 17170914 (Version 3)
Quarter: 2020Q1

REPORT INFORMATION
  Report Type: Report from Study
  Country: US (occurrence: US)
  Receive Date: 20191218
  Receipt Date: 20200211
  Transmission Date: 20200409
  Serious: Yes (Other)
  Sender: FDA-Public Use
  Company Number: US-ASTRAZENECA-2019SF69188

PATIENT
  Age: 19669 Day
  Sex: Female
  Weight: 89.4 kg

DRUGS (1)
  1. BYDUREON BCISE [Suspect]
     Active Substance: EXENATIDE
     Route: 058
     Dates: start: 2018

REACTIONS (14)
  - Contusion [Unknown]
  - Injection site pain [Unknown]
  - Joint injury [Unknown]
  - Device leakage [Unknown]
  - Pruritus [Unknown]
  - Body height decreased [Unknown]
  - Injection site bruising [Unknown]
  - Back pain [Unknown]
  - Road traffic accident [Unknown]
  - Wrong technique in product usage process [Unknown]
  - Intentional device misuse [Unknown]
  - Injection site mass [Unknown]
  - Pain [Unknown]
  - Accident [Unknown]

NARRATIVE: CASE EVENT DATE: 20191121
